FAERS Safety Report 11416667 (Version 4)
Quarter: 2015Q4

REPORT INFORMATION
  Report Type: Spontaneous
  Country: US (occurrence: US)
  Receive Date: 20150825
  Receipt Date: 20151214
  Transmission Date: 20160304
  Serious: Yes (Hospitalization, Other)
  Sender: FDA-Public Use
  Company Number: US-BAYER-2015-405911

PATIENT
  Age: 24 Year
  Sex: Female
  Weight: 70.3 kg

DRUGS (2)
  1. MIRENA [Suspect]
     Active Substance: LEVONORGESTREL
     Indication: CONTRACEPTION
     Dosage: 20 MCG/24HR, CONT
     Route: 015
     Dates: start: 20100723, end: 20130729
  2. ZOLOFT [Concomitant]
     Active Substance: SERTRALINE HYDROCHLORIDE

REACTIONS (9)
  - Abdominal pain [None]
  - Device issue [None]
  - Pregnancy with contraceptive device [None]
  - Injury [None]
  - Medical device pain [None]
  - Drug ineffective [None]
  - Uterine perforation [None]
  - Pelvic inflammatory disease [None]
  - Medical device discomfort [None]

NARRATIVE: CASE EVENT DATE: 201010
